FAERS Safety Report 9951064 (Version 2)
Quarter: 2014Q2

REPORT INFORMATION
  Report Type: Report from Study
  Country: US (occurrence: US)
  Receive Date: 20140304
  Receipt Date: 20140612
  Transmission Date: 20141212
  Serious: Yes (Hospitalization, Other)
  Sender: FDA-Public Use
  Company Number: US-ABBVIE-13P-163-1068778-00

PATIENT
  Age: 43 Year
  Sex: Female

DRUGS (19)
  1. HUMIRA [Suspect]
     Indication: CROHN^S DISEASE
     Dates: start: 201301, end: 201405
  2. CYMBALTA [Concomitant]
     Indication: DEPRESSION
  3. SEROQUEL [Concomitant]
     Indication: INSOMNIA
     Dosage: NIGHTLY
  4. ALPRAZOLAM [Concomitant]
     Indication: ANXIETY
  5. ALPRAZOLAM [Concomitant]
     Indication: PANIC ATTACK
  6. WELLBUTRIN [Concomitant]
     Indication: DEPRESSION
     Dosage: 150 MG DAILY
  7. PHENERGAN [Concomitant]
     Indication: NAUSEA
     Dosage: AS NEEDED
  8. METHADONE [Concomitant]
     Indication: PAIN
     Dosage: 2 IN AM, 1 AT LUNCH, 2 AT NIGHT
  9. METHADONE [Concomitant]
     Indication: CROHN^S DISEASE
  10. PRILOSEC [Concomitant]
     Indication: DYSPEPSIA
     Dosage: 20 MG DAILY
  11. PRILOSEC [Concomitant]
     Indication: GASTROOESOPHAGEAL REFLUX DISEASE
  12. POTASSIUM [Concomitant]
     Indication: PRODUCT USED FOR UNKNOWN INDICATION
     Dosage: 20 MEQ DAILY
  13. MAGNESIUM [Concomitant]
     Indication: PRODUCT USED FOR UNKNOWN INDICATION
  14. VITAMIN B COMPLEX [Concomitant]
     Indication: PRODUCT USED FOR UNKNOWN INDICATION
     Dosage: DAILY SUPPLEMENT
  15. LOMOTIL [Concomitant]
     Indication: DIARRHOEA
     Dosage: AS NEEDED
  16. LOMOTIL [Concomitant]
     Indication: CROHN^S DISEASE
  17. CETIRIZINE [Concomitant]
     Indication: HYPERSENSITIVITY
     Dosage: 10 MG DAILY
  18. MEGESTROL [Concomitant]
     Indication: DECREASED APPETITE
  19. PREDNISONE [Concomitant]
     Indication: DECREASED APPETITE

REACTIONS (9)
  - Small intestinal obstruction [Recovered/Resolved]
  - Oropharyngeal pain [Not Recovered/Not Resolved]
  - Vomiting [Not Recovered/Not Resolved]
  - Diarrhoea [Not Recovered/Not Resolved]
  - Gastrointestinal pain [Unknown]
  - Weight decreased [Unknown]
  - Smear cervix abnormal [Unknown]
  - Nausea [Unknown]
  - Vomiting [Unknown]
